FAERS Safety Report 17064731 (Version 1)
Quarter: 2019Q4

REPORT INFORMATION
  Report Type: Spontaneous
  Country: US (occurrence: US)
  Receive Date: 20191122
  Receipt Date: 20191122
  Transmission Date: 20200122
  Serious: No
  Sender: FDA-Public Use
  Company Number: US-ASTRAZENECA-2019SF53251

PATIENT
  Age: 25359 Day
  Sex: Female
  Weight: 106.6 kg

DRUGS (2)
  1. INSULIN [Concomitant]
     Active Substance: INSULIN NOS
     Dosage: TWICE DAILY
  2. BYDUREON [Suspect]
     Active Substance: EXENATIDE
     Indication: TYPE 2 DIABETES MELLITUS
     Route: 058
     Dates: start: 2019

REACTIONS (6)
  - Fibromyalgia [Unknown]
  - Intentional device misuse [Unknown]
  - Neuropathy peripheral [Unknown]
  - Device malfunction [Unknown]
  - Arthritis [Unknown]
  - Injection site haemorrhage [Unknown]

NARRATIVE: CASE EVENT DATE: 20191024
